FAERS Safety Report 11180039 (Version 3)
Quarter: 2016Q2

REPORT INFORMATION
  Report Type: Spontaneous
  Country: US (occurrence: US)
  Receive Date: 20150522
  Receipt Date: 20160604
  Transmission Date: 20160815
  Serious: No
  Sender: FDA-Public Use
  Company Number: PHEH2015US004910

PATIENT
  Age: 35 Year
  Sex: Female
  Weight: 79.37 kg

DRUGS (2)
  1. COSENTYX [Suspect]
     Active Substance: SECUKINUMAB
     Dosage: 300 MG, QMO
     Route: 058
     Dates: start: 20150723
  2. COSENTYX [Suspect]
     Active Substance: SECUKINUMAB
     Indication: PSORIASIS
     Dosage: 300 MG, QW
     Route: 058
     Dates: start: 20150306

REACTIONS (8)
  - Tonsillitis [Unknown]
  - Infection [Unknown]
  - Psoriasis [Unknown]
  - Oropharyngeal pain [Unknown]
  - Aphonia [Unknown]
  - Fatigue [Unknown]
  - Nausea [Unknown]
  - Rhinorrhoea [Unknown]

NARRATIVE: CASE EVENT DATE: 20150327
